FAERS Safety Report 6994764-0 (Version None)
Quarter: 2010Q3

REPORT INFORMATION
  Report Type: 
  Country: None (occurrence: None)
  Receive Date: 20100917
  Receipt Date: 20090312
  Transmission Date: 20110219
  Serious: Yes (Other)
  Sender: FDA-Public Use
  Company Number: HQWYE186211AUG04

PATIENT
  Sex: Female

DRUGS (7)
  1. PREMPRO [Suspect]
     Indication: HORMONE REPLACEMENT THERAPY
  2. MEDROXYPROGESTERONE ACETATE [Suspect]
  3. ESTRADIOL [Suspect]
  4. MEDROXYPROGESTERONE ACETATE [Suspect]
  5. CENESTIN [Suspect]
  6. PREMARIN [Suspect]
  7. ESTRACE [Suspect]

REACTIONS (1)
  - BREAST CANCER [None]
